FAERS Safety Report 5134411-6 (Version None)
Quarter: 2006Q4

REPORT INFORMATION
  Report Type: 
  Country: None (occurrence: None)
  Receive Date: 20061025
  Receipt Date: 20061013
  Transmission Date: 20070319
  Serious: Yes (Death)
  Sender: FDA-Public Use
  Company Number: CH-BAYER-200614599GDS

PATIENT
  Age: 45 Year
  Sex: Male

DRUGS (5)
  1. CIPROFLOXACIN [Suspect]
     Indication: PNEUMONIA BACTERIAL
     Dosage: UNIT DOSE: 500 MG
     Route: 048
     Dates: start: 20060927, end: 20060928
  2. SUTENT [Suspect]
     Indication: SYNOVIAL SARCOMA
     Route: 048
     Dates: start: 20060914, end: 20060928
  3. DAFALGAN [Suspect]
     Indication: DRUG USE FOR UNKNOWN INDICATION
     Route: 048
     Dates: start: 20060928, end: 20060929
  4. AUGMENTIN [Suspect]
     Indication: PNEUMONIA BACTERIAL
     Dates: start: 20060928, end: 20061001
  5. ZOLPIDEM TARTRATE [Suspect]
     Indication: DRUG USE FOR UNKNOWN INDICATION
     Route: 048
     Dates: start: 20060927, end: 20060928

REACTIONS (4)
  - HAEMODIALYSIS [None]
  - HEPATIC FAILURE [None]
  - LACTIC ACIDOSIS [None]
  - PNEUMONIA BACTERIAL [None]
